FAERS Safety Report 8053605-3 (Version None)
Quarter: 2012Q1

REPORT INFORMATION
  Report Type: 
  Country: None (occurrence: None)
  Receive Date: 20120118
  Receipt Date: 20120112
  Transmission Date: 20120608
  Serious: Yes (Hospitalization, Disabling)
  Sender: FDA-Public Use
  Company Number: US-MERCK-1108USA01140

PATIENT
  Age: 57 Year
  Sex: Female

DRUGS (6)
  1. FOSAMAX [Suspect]
     Route: 048
     Dates: start: 20080312, end: 20080805
  2. FOSAMAX [Suspect]
     Route: 048
     Dates: start: 20080902, end: 20091002
  3. VITAMINS (UNSPECIFIED) [Concomitant]
     Route: 048
     Dates: start: 20010101
  4. ALENDRONATE SODIUM [Suspect]
     Indication: OSTEOPOROSIS
     Route: 048
     Dates: start: 20091029, end: 20100225
  5. FOSAMAX [Suspect]
     Indication: OSTEOPOROSIS
     Route: 048
     Dates: start: 20010820, end: 20100225
  6. VITAMIN D (UNSPECIFIED) [Concomitant]
     Route: 048
     Dates: start: 20010101

REACTIONS (10)
  - NAUSEA [None]
  - VERTIGO [None]
  - HYPOXIA [None]
  - VITAMIN D DEFICIENCY [None]
  - SCOLIOSIS [None]
  - FEMUR FRACTURE [None]
  - FALL [None]
  - OSTEOARTHRITIS [None]
  - POOR QUALITY SLEEP [None]
  - HAEMOGLOBIN DECREASED [None]
